FAERS Safety Report 4983112-3 (Version None)
Quarter: 2006Q2

REPORT INFORMATION
  Report Type: 
  Country: None (occurrence: None)
  Receive Date: 20060426
  Receipt Date: 20060413
  Transmission Date: 20061013
  Serious: Yes (Hospitalization)
  Sender: FDA-Public Use
  Company Number: PHFR2006GB01472

PATIENT
  Age: 6 Year
  Sex: Male

DRUGS (1)
  1. SANDIMMUNE [Suspect]
     Dosage: FEW MLS OF 1ST DOSE
     Route: 065
     Dates: start: 20040324

REACTIONS (12)
  - ANAPHYLACTIC REACTION [None]
  - ANURIA [None]
  - BRADYCARDIA [None]
  - CONVULSION [None]
  - EYE SWELLING [None]
  - GRAND MAL CONVULSION [None]
  - OBSTRUCTIVE AIRWAYS DISORDER [None]
  - PERIPHERAL COLDNESS [None]
  - RESPIRATORY ARREST [None]
  - SWELLING FACE [None]
  - TACHYCARDIA [None]
  - UNRESPONSIVE TO VERBAL STIMULI [None]
